FAERS Safety Report 12312751 (Version 1)
Quarter: 2016Q2

REPORT INFORMATION
  Report Type: Spontaneous
  Country: US (occurrence: None)
  Receive Date: 20160427
  Receipt Date: 20160427
  Transmission Date: 20160815
  Serious: No
  Sender: FDA-Public Use
  Company Number: None

PATIENT
  Age: 31 Year
  Sex: Female
  Weight: 76.66 kg

DRUGS (5)
  1. LORAZEPAM, .5 MG [Suspect]
     Active Substance: LORAZEPAM
     Indication: ANXIETY
     Route: 048
     Dates: start: 20160425, end: 20160425
  2. ORTHO TRI CYCLEN [Concomitant]
     Active Substance: ETHINYL ESTRADIOL\NORGESTIMATE
  3. BACLOFEN. [Concomitant]
     Active Substance: BACLOFEN
  4. MULTIVITAMIN [Concomitant]
     Active Substance: VITAMINS
  5. ADVIL [Concomitant]
     Active Substance: IBUPROFEN

REACTIONS (4)
  - Confusional state [None]
  - Restlessness [None]
  - Paranoia [None]
  - Feeling abnormal [None]

NARRATIVE: CASE EVENT DATE: 20160425
